FAERS Safety Report 10463669 (Version 2)
Quarter: 2014Q4

REPORT INFORMATION
  Report Type: Spontaneous
  Country: TR (occurrence: TR)
  Receive Date: 20140919
  Receipt Date: 20141006
  Transmission Date: 20150528
  Serious: Yes (Other)
  Sender: FDA-Public Use
  Company Number: TR-AMGEN-TURSP2014071425

PATIENT
  Age: 42 Year

DRUGS (2)
  1. ENBREL [Suspect]
     Active Substance: ETANERCEPT
     Indication: ANKYLOSING SPONDYLITIS
     Dosage: 50 MG, WEEKLY
     Route: 065
  2. ENDOL                              /00003801/ [Concomitant]
     Dosage: UNK

REACTIONS (5)
  - Aspartate aminotransferase increased [Unknown]
  - Asthenia [Not Recovered/Not Resolved]
  - Alanine aminotransferase increased [Unknown]
  - Blood uric acid increased [Unknown]
  - Jaundice [Not Recovered/Not Resolved]
